FAERS Safety Report 6687279-0 (Version None)
Quarter: 2010Q2

REPORT INFORMATION
  Report Type: 
  Country: None (occurrence: None)
  Receive Date: 20100419
  Receipt Date: 20100408
  Transmission Date: 20101027
  Serious: Yes (Hospitalization)
  Sender: FDA-Public Use
  Company Number: -BAXTER-2010BH009114

PATIENT
  Sex: Male

DRUGS (1)
  1. HOLOXAN BAXTER [Suspect]
     Indication: B-CELL LYMPHOMA
     Route: 065
     Dates: start: 20100327, end: 20100327

REACTIONS (7)
  - ASCITES [None]
  - BLOOD PRESSURE DECREASED [None]
  - COAGULOPATHY [None]
  - PLEURAL EFFUSION [None]
  - RENAL FAILURE [None]
  - SEPSIS [None]
  - UNRESPONSIVE TO STIMULI [None]
